FAERS Safety Report 7275998-7 (Version None)
Quarter: 2011Q1

REPORT INFORMATION
  Report Type: 
  Country: None (occurrence: None)
  Receive Date: 20110204
  Receipt Date: 20110125
  Transmission Date: 20110831
  Serious: Yes (Hospitalization)
  Sender: FDA-Public Use
  Company Number: B0689526A

PATIENT
  Sex: Male
  Weight: 60 kg

DRUGS (8)
  1. PROPOFOL [Concomitant]
     Dosage: 200MG SINGLE DOSE
     Route: 065
     Dates: start: 20101116, end: 20101116
  2. XYLOCAINE [Concomitant]
     Dosage: 4SPR SINGLE DOSE
     Route: 002
     Dates: start: 20101116, end: 20101116
  3. AMOXICILLIN AND CLAVULANATE POTASSIUM [Concomitant]
     Dosage: 2G SINGLE DOSE
     Route: 042
     Dates: start: 20101116, end: 20101116
  4. DESFLURANE [Suspect]
     Route: 042
     Dates: start: 20101116, end: 20101116
  5. SUFENTANIL [Concomitant]
     Dosage: 22.5MCG PER DAY
     Route: 042
     Dates: start: 20101116, end: 20101116
  6. PERFALGAN [Concomitant]
     Dosage: 1G SINGLE DOSE
     Route: 042
     Dates: start: 20101116, end: 20101116
  7. ZOPHREN [Suspect]
     Indication: VOMITING
     Dosage: 4MG SINGLE DOSE
     Route: 042
     Dates: start: 20101116, end: 20101116
  8. DEXAMETHASONE [Concomitant]
     Dosage: 8MG SINGLE DOSE
     Route: 042
     Dates: start: 20101116, end: 20101116

REACTIONS (9)
  - TROPONIN INCREASED [None]
  - HYPERTENSION [None]
  - EOSINOPHILIA [None]
  - VENTRICULAR TACHYCARDIA [None]
  - VENTRICULAR EXTRASYSTOLES [None]
  - TORSADE DE POINTES [None]
  - CARDIAC FAILURE ACUTE [None]
  - BUNDLE BRANCH BLOCK [None]
  - PULMONARY OEDEMA [None]
